FAERS Safety Report 8265590 (Version 3)
Quarter: 2013Q2

REPORT INFORMATION
  Report Type: Spontaneous
  Country: US (occurrence: US)
  Receive Date: 20111128
  Receipt Date: 20130517
  Transmission Date: 20140414
  Serious: Yes (Other)
  Sender: FDA-Public Use
  Company Number: US-ROCHE-786630

PATIENT
  Age: 23 Year
  Sex: Female
  Weight: 59.02 kg

DRUGS (2)
  1. ACCUTANE [Suspect]
     Indication: ACNE
     Route: 048
  2. ACCUTANE [Suspect]
     Route: 065

REACTIONS (7)
  - Colitis ulcerative [Unknown]
  - Anal haemorrhage [Unknown]
  - Colitis [Unknown]
  - Emotional distress [Unknown]
  - Insomnia [Unknown]
  - Lip dry [Unknown]
  - Dry skin [Unknown]
